FAERS Safety Report 8036892-7 (Version None)
Quarter: 2012Q1

REPORT INFORMATION
  Report Type: 
  Country: None (occurrence: None)
  Receive Date: 20120111
  Receipt Date: 20120103
  Transmission Date: 20120608
  Serious: No
  Sender: FDA-Public Use
  Company Number: US-PFIZER INC-2012003558

PATIENT
  Sex: Male
  Weight: 72.562 kg

DRUGS (3)
  1. PROTONIX [Suspect]
     Indication: GASTROOESOPHAGEAL REFLUX DISEASE
     Dosage: 40 MG, 1X/DAY
     Route: 048
  2. PROTONIX [Suspect]
     Indication: ABDOMINAL DISCOMFORT
  3. NEXIUM [Concomitant]
     Dosage: UNK

REACTIONS (1)
  - BLOOD CHOLESTEROL INCREASED [None]
